FAERS Safety Report 9102398 (Version 1)
Quarter: 2013Q1

REPORT INFORMATION
  Report Type: Spontaneous
  Country: GR (occurrence: GR)
  Receive Date: 20130219
  Receipt Date: 20130219
  Transmission Date: 20140127
  Serious: Yes (Hospitalization)
  Sender: FDA-Public Use
  Company Number: GR-TEVA-386446ISR

PATIENT
  Age: 24 Year
  Sex: Male

DRUGS (2)
  1. RISPERIDONE [Suspect]
     Indication: PSYCHOMOTOR HYPERACTIVITY
     Route: 065
  2. SODIUM VALPROATE [Interacting]
     Indication: EPILEPSY
     Route: 065

REACTIONS (4)
  - Lupus-like syndrome [Recovered/Resolved]
  - Drug interaction [Recovered/Resolved]
  - Potentiating drug interaction [None]
  - Pleural effusion [None]
